FAERS Safety Report 5955477-7 (Version None)
Quarter: 2008Q4

REPORT INFORMATION
  Report Type: 
  Country: None (occurrence: None)
  Receive Date: 20081031
  Receipt Date: 20080723
  Transmission Date: 20090506
  Serious: No
  Sender: FDA-Public Use
  Company Number: 2008PV036259

PATIENT
  Age: 47 Year
  Sex: Male

DRUGS (6)
  1. SYMLIN [Suspect]
     Indication: TYPE 1 DIABETES MELLITUS
     Dosage: 30 MCG; TID; SC, TID; SC
     Route: 058
     Dates: start: 20050101, end: 20050101
  2. SYMLIN [Suspect]
     Indication: TYPE 1 DIABETES MELLITUS
     Dosage: 30 MCG; TID; SC, TID; SC
     Route: 058
     Dates: start: 20050101, end: 20050101
  3. NOVOLOG [Concomitant]
  4. LOVAZA [Concomitant]
  5. VITAMINS  SUPPLIMENTS [Concomitant]
  6. SUPPLEMENTS [Concomitant]

REACTIONS (3)
  - FATIGUE [None]
  - HEADACHE [None]
  - NAUSEA [None]
